FAERS Safety Report 8803055 (Version 3)
Quarter: 2012Q4

REPORT INFORMATION
  Report Type: 
  Country: GB (occurrence: GB)
  Receive Date: 20120924
  Receipt Date: 20121204
  Transmission Date: 20130627
  Serious: Yes (Other)
  Sender: FDA-Public Use
  Company Number: PHFR2012GB005062

PATIENT
  Age: 65 Year
  Sex: Male
  Weight: 105 kg

DRUGS (3)
  1. CLOZARIL [Suspect]
     Indication: SCHIZOPHRENIA, PARANOID TYPE
     Route: 048
     Dates: start: 20120830, end: 20120914
  2. DEPAKOTE [Concomitant]
     Dosage: 100 mg, BD
     Route: 048
  3. SERTRALINE [Concomitant]
     Dosage: 100 mg, OD
     Route: 048

REACTIONS (8)
  - Urinary tract infection [Unknown]
  - Oedema [Recovering/Resolving]
  - Mental impairment [Recovered/Resolved]
  - Confusional state [Recovered/Resolved]
  - Urinary incontinence [Recovered/Resolved]
  - C-reactive protein increased [Unknown]
  - White blood cell count increased [Unknown]
  - Platelet count decreased [Unknown]
